FAERS Safety Report 24366055 (Version 1)
Quarter: 2024Q3

REPORT INFORMATION
  Report Type: Spontaneous
  Country: US (occurrence: US)
  Receive Date: 20240926
  Receipt Date: 20240926
  Transmission Date: 20241016
  Serious: No
  Sender: ROCHE
  Company Number: US-ROCHE-10000086609

PATIENT
  Sex: Male

DRUGS (3)
  1. NUTROPIN AQ NUSPIN 10 [Suspect]
     Active Substance: SOMATROPIN
     Indication: Failure to thrive
     Dosage: STRENGTH:10MG/2ML
     Route: 058
     Dates: start: 201907
  2. NUTROPIN AQ NUSPIN 10 [Suspect]
     Active Substance: SOMATROPIN
     Indication: Short stature
  3. NUTROPIN AQ NUSPIN 10 [Suspect]
     Active Substance: SOMATROPIN
     Indication: Hypopituitarism

REACTIONS (3)
  - Device mechanical issue [Unknown]
  - Off label use [Unknown]
  - No adverse event [Unknown]
